FAERS Safety Report 7671964-8 (Version None)
Quarter: 2011Q3

REPORT INFORMATION
  Report Type: 
  Country: None (occurrence: None)
  Receive Date: 20110809
  Receipt Date: 20110428
  Transmission Date: 20111222
  Serious: Yes (Death)
  Sender: FDA-Public Use
  Company Number: JP-GLAXOSMITHKLINE-B0716514A

PATIENT
  Sex: Female
  Weight: 18 kg

DRUGS (18)
  1. GAMIMUNE N 5% [Concomitant]
     Dates: start: 20070430
  2. ZOVIRAX [Concomitant]
     Dosage: 90MG PER DAY
     Route: 042
     Dates: start: 20070501
  3. FAMOTIDINE [Concomitant]
     Dosage: 16MG PER DAY
     Dates: start: 20070502
  4. CARBENIN [Concomitant]
     Dosage: 1800MG PER DAY
     Route: 042
     Dates: start: 20070506, end: 20070521
  5. ALKERAN [Suspect]
     Indication: STEM CELL TRANSPLANT
     Dosage: 40MGM2 PER DAY
     Route: 042
     Dates: start: 20070425, end: 20070426
  6. THIOTEPA [Suspect]
     Indication: STEM CELL TRANSPLANT
     Dosage: 120MGM2 PER DAY
     Dates: start: 20070425, end: 20070426
  7. THIOTEPA [Suspect]
     Dosage: 134MGM2 PER DAY
     Dates: start: 20070502, end: 20070503
  8. TOBRACIN [Concomitant]
     Dosage: 50MG PER DAY
     Dates: start: 20070512, end: 20070519
  9. DIAMOX SRC [Concomitant]
     Dosage: 200MG PER DAY
     Route: 048
     Dates: start: 20070425, end: 20070506
  10. POLYMYXIN B SULFATE [Concomitant]
     Dosage: 750000IU PER DAY
     Route: 048
     Dates: start: 20070425
  11. SEROTONE [Concomitant]
     Dosage: 12MG PER DAY
     Route: 042
     Dates: start: 20070425, end: 20070521
  12. DOBUTREX [Concomitant]
     Dates: start: 20070425, end: 20070506
  13. FLUCONAZOLE [Concomitant]
     Dosage: 160MG PER DAY
     Route: 042
     Dates: start: 20070429, end: 20070524
  14. ALKERAN [Suspect]
     Dosage: 48MGM2 PER DAY
     Route: 042
     Dates: start: 20070502, end: 20070503
  15. RADIATION [Suspect]
  16. NEU-UP [Concomitant]
     Dates: start: 20070514, end: 20070521
  17. FUROSEMIDE [Concomitant]
     Dosage: 10MG PER DAY
     Route: 048
     Dates: start: 20070425
  18. ALLOPURINOL [Concomitant]
     Dosage: 100MG PER DAY
     Route: 048
     Dates: start: 20070504

REACTIONS (1)
  - LEUKAEMIA [None]
